FAERS Safety Report 24974976 (Version 1)
Quarter: 2025Q1

REPORT INFORMATION
  Report Type: Report from Study
  Country: PK (occurrence: PK)
  Receive Date: 20250217
  Receipt Date: 20250217
  Transmission Date: 20250409
  Serious: Yes (Death, Other)
  Sender: ROCHE
  Company Number: PK-ROCHE-10000208140

PATIENT
  Age: 62 Year
  Sex: Male

DRUGS (1)
  1. AVASTIN [Suspect]
     Active Substance: BEVACIZUMAB
     Indication: Glioblastoma
     Route: 040
     Dates: start: 20241021, end: 20241024

REACTIONS (5)
  - Hydrocephalus [Fatal]
  - Weight decreased [Unknown]
  - Decreased appetite [Unknown]
  - Hemiparesis [Unknown]
  - Memory impairment [Unknown]

NARRATIVE: CASE EVENT DATE: 20241118
